FAERS Safety Report 11976516 (Version 8)
Quarter: 2016Q2

REPORT INFORMATION
  Report Type: Report from Study
  Country: CA (occurrence: CA)
  Receive Date: 20160129
  Receipt Date: 20160615
  Transmission Date: 20160815
  Serious: Yes (Hospitalization, Other)
  Sender: FDA-Public Use
  Company Number: PHHY2015CA094762

PATIENT
  Age: 39 Year
  Sex: Female

DRUGS (4)
  1. ILARIS [Suspect]
     Active Substance: CANAKINUMAB
     Indication: CRYOPYRIN ASSOCIATED PERIODIC SYNDROME
     Dosage: 150 MG, Q4 WEEKS
     Route: 058
     Dates: start: 20150723
  2. ILARIS [Suspect]
     Active Substance: CANAKINUMAB
     Dosage: 150 MG, Q 4 WEEEKS
     Route: 058
     Dates: start: 20160418
  3. ILARIS [Suspect]
     Active Substance: CANAKINUMAB
     Dosage: 150 MG, Q 4 WEEEKS
     Route: 058
     Dates: start: 20160321
  4. ILARIS [Suspect]
     Active Substance: CANAKINUMAB
     Dosage: 150 MG, Q 4 WEEEKS
     Route: 058
     Dates: start: 20160516

REACTIONS (15)
  - Night sweats [Unknown]
  - Gingivitis [Unknown]
  - Joint ankylosis [Unknown]
  - Fatigue [Unknown]
  - Erythema [Unknown]
  - Rash papular [Unknown]
  - Pneumonia [Recovering/Resolving]
  - Musculoskeletal stiffness [Unknown]
  - Inflammation [Unknown]
  - Pain [Unknown]
  - Hyperaesthesia [Unknown]
  - Cutaneous symptom [Unknown]
  - Malaise [Unknown]
  - Rash [Unknown]
  - Neutrophilic dermatosis [Unknown]

NARRATIVE: CASE EVENT DATE: 2015
